FAERS Safety Report 7518775-1 (Version None)
Quarter: 2011Q2

REPORT INFORMATION
  Report Type: 
  Country: None (occurrence: None)
  Receive Date: 20110602
  Receipt Date: 20110527
  Transmission Date: 20111010
  Serious: No
  Sender: FDA-Public Use
  Company Number: US-PFIZER INC-2011115464

PATIENT
  Sex: Male
  Weight: 77.098 kg

DRUGS (8)
  1. LYRICA [Suspect]
     Indication: PAIN
     Dosage: 50 MG, 2X/DAY
     Dates: start: 20110501
  2. TRAZODONE [Concomitant]
     Dosage: 100 MG, 1X/DAY
     Route: 048
  3. PRISTIQ [Suspect]
     Dosage: 50 MG, 1X/DAY
     Route: 048
     Dates: start: 20110425
  4. ZOLPIDEM [Concomitant]
     Indication: SLEEP DISORDER
     Dosage: 10 MG, 1X/DAY
  5. DETROL [Concomitant]
     Dosage: 1 MG, UNK
  6. TRAMADOL [Concomitant]
     Dosage: 50 MG, EVERY 6 HOURS
  7. PAROXETINE [Concomitant]
     Dosage: 25 MG, 1X/DAY
  8. IBUPROFEN [Concomitant]
     Indication: PAIN
     Dosage: 400 MG, 4X/DAY

REACTIONS (1)
  - DRUG SCREEN POSITIVE [None]
